FAERS Safety Report 13971231 (Version 27)
Quarter: 2023Q2

REPORT INFORMATION
  Report Type: Report from Study
  Country: US (occurrence: US)
  Receive Date: 20170914
  Receipt Date: 20230502
  Transmission Date: 20230722
  Serious: Yes (Hospitalization, Other)
  Sender: FDA-Public Use
  Company Number: US-ASTELLAS-2017US014871

PATIENT
  Sex: Male

DRUGS (8)
  1. ENZALUTAMIDE [Suspect]
     Active Substance: ENZALUTAMIDE
     Indication: Prostate cancer
     Route: 048
     Dates: start: 201512
  2. ENZALUTAMIDE [Suspect]
     Active Substance: ENZALUTAMIDE
     Indication: Prostate cancer
     Dosage: 160 MG, ONCE DAILY (IN THE MORNING AROUND 7:30AM (4 TABLETS PER DAY)
     Route: 048
     Dates: start: 20220701
  3. ENZALUTAMIDE [Suspect]
     Active Substance: ENZALUTAMIDE
     Dosage: 160 MG, UNKNOWN FREQ. (STRENGTH: 40 MG)
     Route: 048
  4. LISINOPRIL [Concomitant]
     Active Substance: LISINOPRIL
     Indication: Hypertension
     Route: 048
     Dates: start: 2019
  5. VITAMIN D3 [Concomitant]
     Active Substance: CHOLECALCIFEROL
     Indication: Product used for unknown indication
     Dosage: 5000 IU, ONCE WEEKLY (PER WEEK)
     Route: 065
  6. LUPRON [Concomitant]
     Active Substance: LEUPROLIDE ACETATE
     Indication: Prostate cancer
     Dosage: 30 MG, OTHER (EVERY 6 MONTHS)
     Route: 065
     Dates: start: 201505
  7. XGEVA [Concomitant]
     Active Substance: DENOSUMAB
     Indication: Product used for unknown indication
     Dosage: UNK UNK, OTHER (EVERY 3 MONTHS)
     Route: 065
     Dates: start: 2016
  8. ROBITUSSIN (GUAIFENESIN) [Concomitant]
     Active Substance: GUAIFENESIN
     Indication: Product used for unknown indication
     Dosage: UNK UNK, AS NEEDED
     Route: 042

REACTIONS (27)
  - Pulmonary congestion [Recovered/Resolved]
  - Road traffic accident [Recovering/Resolving]
  - Joint injury [Not Recovered/Not Resolved]
  - Limb injury [Not Recovered/Not Resolved]
  - Rotator cuff syndrome [Not Recovered/Not Resolved]
  - Lower limb fracture [Recovered/Resolved]
  - Blister [Unknown]
  - Fatigue [Unknown]
  - Night sweats [Not Recovered/Not Resolved]
  - Ear infection [Recovered/Resolved]
  - Libido decreased [Unknown]
  - Hypoaesthesia [Unknown]
  - Paraesthesia [Not Recovered/Not Resolved]
  - Blood pressure increased [Unknown]
  - Hot flush [Unknown]
  - Abdominal discomfort [Recovered/Resolved]
  - Hernia [Recovering/Resolving]
  - Muscle spasms [Recovering/Resolving]
  - Rash [Not Recovered/Not Resolved]
  - Vitamin D deficiency [Recovering/Resolving]
  - Hyperhidrosis [Not Recovered/Not Resolved]
  - Hyperhidrosis [Not Recovered/Not Resolved]
  - Hyperhidrosis [Recovering/Resolving]
  - Insomnia [Unknown]
  - Hyperhidrosis [Unknown]
  - Night sweats [Unknown]
  - Flushing [Unknown]

NARRATIVE: CASE EVENT DATE: 20150101
